FAERS Safety Report 8922627 (Version 2)
Quarter: 2012Q4

REPORT INFORMATION
  Report Type: 
  Country: ES (occurrence: ES)
  Receive Date: 20121125
  Receipt Date: 20121224
  Transmission Date: 20130627
  Serious: Yes (Death, Hospitalization, Other)
  Sender: FDA-Public Use
  Company Number: ES-BRISTOL-MYERS SQUIBB COMPANY-17060740

PATIENT
  Age: 51 Year
  Sex: Female

DRUGS (1)
  1. YERVOY [Suspect]
     Indication: METASTATIC MALIGNANT MELANOMA
     Dosage: 24Jul and 13Aug12
     Dates: start: 20120703

REACTIONS (4)
  - Cerebral haematoma [Fatal]
  - Neuropathy peripheral [Recovering/Resolving]
  - Hypophysitis [Recovering/Resolving]
  - Pneumonia [Recovering/Resolving]
